FAERS Safety Report 13677076 (Version 4)
Quarter: 2017Q4

REPORT INFORMATION
  Report Type: Spontaneous
  Country: US (occurrence: US)
  Receive Date: 20170622
  Receipt Date: 20171006
  Transmission Date: 20180320
  Serious: Yes (Congenital Anomaly, Other)
  Sender: FDA-Public Use
  Company Number: PHEH2017US018970

PATIENT
  Sex: Male

DRUGS (2)
  1. ZOFRAN [Suspect]
     Active Substance: ONDANSETRON HYDROCHLORIDE
     Indication: FOETAL EXPOSURE DURING PREGNANCY
     Dosage: MOTHER^S DOSE: 08 MG, PRN
     Route: 064
  2. ZOFRAN [Suspect]
     Active Substance: ONDANSETRON HYDROCHLORIDE
     Indication: FOETAL EXPOSURE DURING PREGNANCY
     Route: 064

REACTIONS (37)
  - Atrial septal defect [Unknown]
  - Skin papilloma [Unknown]
  - Abdominal pain [Unknown]
  - Lymphadenitis [Unknown]
  - Oropharyngeal pain [Unknown]
  - Cardiac murmur [Unknown]
  - Left-to-right cardiac shunt [Unknown]
  - Mitral valve incompetence [Unknown]
  - Patent ductus arteriosus [Unknown]
  - Jaundice neonatal [Recovered/Resolved]
  - Pyrexia [Unknown]
  - Dizziness [Unknown]
  - Left ventricular enlargement [Unknown]
  - Aortic valve incompetence [Unknown]
  - Small for dates baby [Unknown]
  - Otitis media [Unknown]
  - Speech disorder [Unknown]
  - Urinary tract infection [Unknown]
  - Sleep apnoea syndrome [Unknown]
  - Chills [Unknown]
  - Constipation [Unknown]
  - Foetal exposure during pregnancy [Unknown]
  - Injury [Unknown]
  - Upper respiratory tract infection [Unknown]
  - Dysuria [Unknown]
  - Tonsillar hypertrophy [Unknown]
  - Dyspnoea [Unknown]
  - Febrile convulsion [Recovered/Resolved]
  - Developmental delay [Unknown]
  - Pain in extremity [Unknown]
  - Hypothermia neonatal [Recovered/Resolved]
  - Adenoidal hypertrophy [Unknown]
  - Left atrial enlargement [Unknown]
  - Pneumonia [Unknown]
  - Intussusception [Unknown]
  - Ileus [Unknown]
  - Viral infection [Unknown]
